APPROVED DRUG PRODUCT: TRETINOIN
Active Ingredient: TRETINOIN
Strength: 0.1%
Dosage Form/Route: CREAM;TOPICAL
Application: A217833 | Product #001 | TE Code: AB
Applicant: ENCUBE ETHICALS PRIVATE LTD
Approved: Feb 10, 2026 | RLD: No | RS: No | Type: RX